FAERS Safety Report 7100150-5 (Version None)
Quarter: 2010Q4

REPORT INFORMATION
  Report Type: 
  Country: None (occurrence: None)
  Receive Date: 20101112
  Receipt Date: 20100527
  Transmission Date: 20110411
  Serious: No
  Sender: FDA-Public Use
  Company Number: A0861702A

PATIENT
  Sex: Female

DRUGS (6)
  1. CARVEDILOL [Suspect]
     Indication: CARDIAC SEPTAL DEFECT
     Route: 048
  2. COREG CR [Suspect]
     Indication: CARDIAC SEPTAL DEFECT
     Dosage: 20MG PER DAY
     Route: 048
  3. COREG [Suspect]
     Indication: CARDIAC SEPTAL DEFECT
     Dosage: 6.25MG PER DAY
     Route: 048
  4. ATIVAN [Concomitant]
  5. EVENING PRIMROSE [Concomitant]
  6. UNKNOWN MEDICATION [Concomitant]

REACTIONS (5)
  - DIARRHOEA [None]
  - DRUG INEFFECTIVE [None]
  - OEDEMA PERIPHERAL [None]
  - SWELLING FACE [None]
  - WEIGHT INCREASED [None]
